FAERS Safety Report 8428938-9 (Version None)
Quarter: 2012Q2

REPORT INFORMATION
  Report Type: 
  Country: None (occurrence: None)
  Receive Date: 20120612
  Receipt Date: 20120606
  Transmission Date: 20120825
  Serious: Yes (Death)
  Sender: FDA-Public Use
  Company Number: US-ASTELLAS-2012US005326

PATIENT
  Sex: Male

DRUGS (1)
  1. PROGRAF [Suspect]
     Indication: LUNG TRANSPLANT
     Dosage: 3.5 MG, BID
     Route: 065
     Dates: start: 20100226, end: 20120309

REACTIONS (2)
  - OFF LABEL USE [None]
  - COMPLICATIONS OF TRANSPLANTED LUNG [None]
